FAERS Safety Report 17180934 (Version 1)
Quarter: 2019Q4

REPORT INFORMATION
  Report Type: Spontaneous
  Country: JP (occurrence: JP)
  Receive Date: 20191219
  Receipt Date: 20191219
  Transmission Date: 20200122
  Serious: Yes (Other)
  Sender: FDA-Public Use
  Company Number: NVSJ2019JP005724

PATIENT
  Age: 40 Year
  Sex: Female

DRUGS (3)
  1. IMATINIB MESILATE [Suspect]
     Active Substance: IMATINIB MESYLATE
     Dosage: UNK
     Route: 065
  2. IMATINIB MESILATE [Suspect]
     Active Substance: IMATINIB MESYLATE
     Indication: CHRONIC MYELOID LEUKAEMIA
     Dosage: 300 MG
     Route: 065
  3. IMATINIB MESILATE [Suspect]
     Active Substance: IMATINIB MESYLATE
     Dosage: 200 MG
     Route: 065

REACTIONS (2)
  - Therapeutic product effect incomplete [Unknown]
  - Gallbladder polyp [Unknown]
